FAERS Safety Report 9423469 (Version 3)
Quarter: 2013Q3

REPORT INFORMATION
  Report Type: Spontaneous
  Country: GB (occurrence: GB)
  Receive Date: 20130726
  Receipt Date: 20130805
  Transmission Date: 20140515
  Serious: Yes (Other)
  Sender: FDA-Public Use
  Company Number: GB-009507513-1307GBR014205

PATIENT
  Age: 68 Year
  Sex: Male

DRUGS (1)
  1. DEXAMETHASONE [Suspect]
     Indication: NERVE COMPRESSION
     Dosage: 8 MG, 1/1DAYS
     Route: 048

REACTIONS (1)
  - Blood glucose abnormal [Unknown]
